FAERS Safety Report 12493602 (Version 1)
Quarter: 2016Q2

REPORT INFORMATION
  Report Type: Spontaneous
  Country: US (occurrence: US)
  Receive Date: 20160623
  Receipt Date: 20160623
  Transmission Date: 20160815
  Serious: Yes (Hospitalization, Other)
  Sender: FDA-Public Use
  Company Number: US-MYLANLABS-2016M1025726

PATIENT

DRUGS (1)
  1. KETAMINE [Suspect]
     Active Substance: KETAMINE
     Indication: JOINT DISLOCATION REDUCTION
     Dosage: 1.5 MG/KG
     Route: 042

REACTIONS (1)
  - Supraventricular tachycardia [Recovered/Resolved]
